FAERS Safety Report 17611527 (Version 1)
Quarter: 2020Q2

REPORT INFORMATION
  Report Type: Report from Study
  Country: US (occurrence: US)
  Receive Date: 20200401
  Receipt Date: 20200401
  Transmission Date: 20200713
  Serious: No
  Sender: FDA-Public Use
  Company Number: US-RETROPHIN, INC.-2019RTN00074

PATIENT
  Age: 27 Day
  Sex: Male

DRUGS (1)
  1. CHOLBAM [Suspect]
     Active Substance: CHOLIC ACID
     Indication: ENZYME ABNORMALITY
     Dosage: 50 MG, 1X/DAY
     Route: 048
     Dates: start: 20190710

REACTIONS (4)
  - Food refusal [Recovered/Resolved]
  - Blood bilirubin increased [Unknown]
  - Eructation [Unknown]
  - Infantile vomiting [Recovering/Resolving]

NARRATIVE: CASE EVENT DATE: 201907
